FAERS Safety Report 21337241 (Version 1)
Quarter: 2022Q3

REPORT INFORMATION
  Report Type: Spontaneous
  Country: GB (occurrence: GB)
  Receive Date: 20220915
  Receipt Date: 20220915
  Transmission Date: 20221026
  Serious: Yes (Life-Threatening, Other)
  Sender: FDA-Public Use
  Company Number: GB-AMGEN-GBRSP2022157242

PATIENT

DRUGS (1)
  1. ADALIMUMAB [Suspect]
     Active Substance: ADALIMUMAB
     Indication: Colitis ulcerative
     Dosage: UNK
     Route: 065

REACTIONS (7)
  - Disease complication [Unknown]
  - Colitis ulcerative [Unknown]
  - Disseminated tuberculosis [Unknown]
  - Loss of therapeutic response [Unknown]
  - Drug intolerance [Unknown]
  - Adverse drug reaction [Unknown]
  - Therapy non-responder [Unknown]
